FAERS Safety Report 13570343 (Version 1)
Quarter: 2017Q2

REPORT INFORMATION
  Report Type: Spontaneous
  Country: US (occurrence: US)
  Receive Date: 20170522
  Receipt Date: 20170522
  Transmission Date: 20170830
  Serious: Yes (Hospitalization)
  Sender: FDA-Public Use
  Company Number: US-VIFOR (INTERNATIONAL) INC.-VIT-2016-07887

PATIENT
  Sex: Female
  Weight: 103.42 kg

DRUGS (41)
  1. ACARBOSE. [Concomitant]
     Active Substance: ACARBOSE
  2. CLONAZEPAM. [Concomitant]
     Active Substance: CLONAZEPAM
  3. DULOXETINE HYDROCHLORIDE. [Concomitant]
     Active Substance: DULOXETINE HYDROCHLORIDE
  4. LEVEMIR [Concomitant]
     Active Substance: INSULIN DETEMIR
  5. NEURONTIN [Concomitant]
     Active Substance: GABAPENTIN
  6. TRIPHROCAPS [Concomitant]
     Active Substance: ASCORBIC ACID\BIOTIN\CALCIUM PANTOTHENATE\CYANOCOBALAMIN\FOLIC ACID\NIACINAMIDE\PYRIDOXINE HYDROCHLORIDE\RIBOFLAVIN\THIAMINE HYDROCHLORIDE
  7. VELTASSA [Suspect]
     Active Substance: PATIROMER
     Indication: HYPERKALAEMIA
     Route: 048
     Dates: start: 20160108
  8. ANTACID [Concomitant]
     Active Substance: ALUMINUM HYDROXIDE\CALCIUM CARBONATE\DIMETHICONE\MAGNESIUM HYDROXIDE
  9. ISOSORBIDE DINITRATE. [Concomitant]
     Active Substance: ISOSORBIDE DINITRATE
  10. MAGNESIUM OXIDE. [Concomitant]
     Active Substance: MAGNESIUM OXIDE
  11. MAGNESIUM HYDROXIDE. [Concomitant]
     Active Substance: MAGNESIUM HYDROXIDE
  12. TUSSIN [Concomitant]
     Active Substance: GUAIFENESIN
  13. COLECALCIFEROL [Concomitant]
     Active Substance: CHOLECALCIFEROL
  14. BISACODYL. [Concomitant]
     Active Substance: BISACODYL
  15. FERROUS SULFATE. [Concomitant]
     Active Substance: FERROUS SULFATE
  16. LORATADINE. [Concomitant]
     Active Substance: LORATADINE
  17. SPIRIVA [Concomitant]
     Active Substance: TIOTROPIUM BROMIDE MONOHYDRATE
  18. LEVOTHYROXINE SODIUM. [Concomitant]
     Active Substance: LEVOTHYROXINE SODIUM
  19. SYNTHROID [Concomitant]
     Active Substance: LEVOTHYROXINE SODIUM
  20. METOPROLOL TARTRATE. [Concomitant]
     Active Substance: METOPROLOL TARTRATE
  21. OXYCODONE HYDROCHLORIDE. [Concomitant]
     Active Substance: OXYCODONE HYDROCHLORIDE
  22. PRAVASTATIN SODIUM. [Concomitant]
     Active Substance: PRAVASTATIN SODIUM
  23. GABAPENTIN. [Concomitant]
     Active Substance: GABAPENTIN
  24. HYDRALAZINE HYDROCHLORIDE. [Concomitant]
     Active Substance: HYDRALAZINE HYDROCHLORIDE
  25. METOCLOPRAMIDE HYDROCHLORIDE. [Concomitant]
     Active Substance: METOCLOPRAMIDE HYDROCHLORIDE
  26. TYLENOL [Concomitant]
     Active Substance: ACETAMINOPHEN
  27. VESICARE [Concomitant]
     Active Substance: SOLIFENACIN SUCCINATE
  28. FENOFIBRATE. [Concomitant]
     Active Substance: FENOFIBRATE
  29. LISINOPRIL. [Concomitant]
     Active Substance: LISINOPRIL
  30. LOPRESSOR [Concomitant]
     Active Substance: METOPROLOL TARTRATE
  31. MINTOX [Concomitant]
     Active Substance: ALUMINUM HYDROXIDE\DIMETHICONE\MAGNESIUM HYDROXIDE
  32. NITROSTAT [Concomitant]
     Active Substance: NITROGLYCERIN
  33. PINK BISMUTH [Concomitant]
     Active Substance: BISMUTH SUBSALICYLATE
  34. PRAVACHOL [Concomitant]
     Active Substance: PRAVASTATIN SODIUM
  35. REGLAN [Concomitant]
     Active Substance: METOCLOPRAMIDE HYDROCHLORIDE
  36. TUMS [Concomitant]
     Active Substance: CALCIUM CARBONATE
  37. PARACETAMOL [Concomitant]
     Active Substance: ACETAMINOPHEN
  38. CRANBERRY. [Concomitant]
     Active Substance: CRANBERRY
  39. FLORASTOR [Concomitant]
     Active Substance: SACCHAROMYCES CEREVISIAE
  40. MORPHINE SULFATE. [Concomitant]
     Active Substance: MORPHINE SULFATE
  41. PAROXETINE HYDROCHLORIDE. [Concomitant]
     Active Substance: PAROXETINE HYDROCHLORIDE

REACTIONS (1)
  - Urinary tract infection [Unknown]
